FAERS Safety Report 9206379 (Version 1)
Quarter: 2013Q2

REPORT INFORMATION
  Report Type: Spontaneous
  Country: AU (occurrence: AU)
  Receive Date: 20130403
  Receipt Date: 20130403
  Transmission Date: 20140414
  Serious: Yes (Other)
  Sender: FDA-Public Use
  Company Number: PHHY2013AU030214

PATIENT
  Sex: Male

DRUGS (2)
  1. GLIVEC [Suspect]
     Indication: GRAFT VERSUS HOST DISEASE
     Dosage: UNK
     Route: 048
  2. GLIVEC [Suspect]
     Indication: OFF LABEL USE

REACTIONS (1)
  - Oesophageal carcinoma [Unknown]
